FAERS Safety Report 14617272 (Version 2)
Quarter: 2018Q1

REPORT INFORMATION
  Report Type: Report from Study
  Country: US (occurrence: US)
  Receive Date: 20180309
  Receipt Date: 20180315
  Transmission Date: 20180509
  Serious: Yes (Death)
  Sender: FDA-Public Use
  Company Number: US-ASTELLAS-2018US002914

PATIENT
  Sex: Male

DRUGS (2)
  1. ISAVUCONAZOLE [Suspect]
     Active Substance: ISAVUCONAZOLE
     Indication: ASPERGILLUS INFECTION
  2. ISAVUCONAZOLE [Suspect]
     Active Substance: ISAVUCONAZOLE
     Indication: CHRONIC MYELOID LEUKAEMIA
     Route: 048

REACTIONS (2)
  - Death [Fatal]
  - Off label use [Unknown]
